FAERS Safety Report 6985800-6 (Version None)
Quarter: 2010Q3

REPORT INFORMATION
  Report Type: 
  Country: None (occurrence: None)
  Receive Date: 20100827
  Receipt Date: 20100525
  Transmission Date: 20110219
  Serious: No
  Sender: FDA-Public Use
  Company Number: 012543

PATIENT
  Sex: Male

DRUGS (3)
  1. LACOSAMIDE [Suspect]
     Indication: CONVULSION
     Dosage: ORAL
     Route: 048
     Dates: start: 20100501, end: 20100501
  2. ANTIEPILEPTICS [Concomitant]
  3. LYRICA [Concomitant]

REACTIONS (1)
  - HALLUCINATION, VISUAL [None]
